FAERS Safety Report 18881838 (Version 2)
Quarter: 2021Q2

REPORT INFORMATION
  Report Type: Spontaneous
  Country: US (occurrence: US)
  Receive Date: 20210212
  Receipt Date: 20210611
  Transmission Date: 20210717
  Serious: Yes (Other)
  Sender: FDA-Public Use
  Company Number: US-GILEAD-2021-0515536

PATIENT
  Sex: Male
  Weight: 175 kg

DRUGS (77)
  1. ATRIPLA [Suspect]
     Active Substance: EFAVIRENZ\EMTRICITABINE\TENOFOVIR DISOPROXIL FUMARATE
     Indication: HIV INFECTION
     Dosage: UNK
     Route: 048
  2. FINASTERIDE. [Concomitant]
     Active Substance: FINASTERIDE
  3. AMOXICILLIN. [Concomitant]
     Active Substance: AMOXICILLIN
  4. DESONIDE. [Concomitant]
     Active Substance: DESONIDE
  5. TAZOBACTAM [Concomitant]
     Active Substance: TAZOBACTAM
  6. VANCOMYCIN [Concomitant]
     Active Substance: VANCOMYCIN
  7. HYALURONATE SODIUM [Concomitant]
     Active Substance: HYALURONATE SODIUM
  8. LEVOFLOXACIN. [Concomitant]
     Active Substance: LEVOFLOXACIN
  9. PREDNISONE. [Concomitant]
     Active Substance: PREDNISONE
  10. SALICYLIC ACID. [Concomitant]
     Active Substance: SALICYLIC ACID
  11. TAMSULOSIN [Concomitant]
     Active Substance: TAMSULOSIN
  12. TRIAMCINOLONE [Concomitant]
     Active Substance: TRIAMCINOLONE
  13. ODEFSEY [Concomitant]
     Active Substance: EMTRICITABINE\RILPIVIRINE HYDROCHLORIDE\TENOFOVIR ALAFENAMIDE FUMARATE
  14. CODEINE [Concomitant]
     Active Substance: CODEINE
  15. DICYCLOMINE [Concomitant]
     Active Substance: DICYCLOMINE HYDROCHLORIDE
  16. METHOCARBAMOL. [Concomitant]
     Active Substance: METHOCARBAMOL
  17. MUPIROCIN. [Concomitant]
     Active Substance: MUPIROCIN
  18. PROMETHAZINE [Concomitant]
     Active Substance: PROMETHAZINE HYDROCHLORIDE
  19. SILDENAFIL. [Concomitant]
     Active Substance: SILDENAFIL
  20. TRAMADOL. [Concomitant]
     Active Substance: TRAMADOL
  21. ATRIPLA [Suspect]
     Active Substance: EFAVIRENZ\EMTRICITABINE\TENOFOVIR DISOPROXIL FUMARATE
     Dosage: UNK
     Route: 065
     Dates: start: 201106, end: 2017
  22. SUSTIVA [Concomitant]
     Active Substance: EFAVIRENZ
  23. AMITRIPTYLINE [Concomitant]
     Active Substance: AMITRIPTYLINE
  24. FLUCONAZOLE. [Concomitant]
     Active Substance: FLUCONAZOLE
  25. LEVITRA [Concomitant]
     Active Substance: VARDENAFIL HYDROCHLORIDE
  26. MAGNESIUM [Concomitant]
     Active Substance: MAGNESIUM
  27. METHYLPREDNISOLONE. [Concomitant]
     Active Substance: METHYLPREDNISOLONE
  28. PIROXICAM. [Concomitant]
     Active Substance: PIROXICAM
  29. SODIUM BICARBONATE. [Concomitant]
     Active Substance: SODIUM BICARBONATE
  30. TRANEXAMIC [Concomitant]
     Active Substance: TRANEXAMIC ACID
  31. VALACYCLOVIR [Concomitant]
     Active Substance: VALACYCLOVIR HYDROCHLORIDE
  32. ATRIPLA [Suspect]
     Active Substance: EFAVIRENZ\EMTRICITABINE\TENOFOVIR DISOPROXIL FUMARATE
     Dosage: UNK
     Route: 065
     Dates: start: 201203, end: 201809
  33. VIAGRA [Concomitant]
     Active Substance: SILDENAFIL CITRATE
  34. INDOMETHACIN SODIUM [Concomitant]
     Active Substance: INDOMETHACIN SODIUM
  35. LABETALOL [Concomitant]
     Active Substance: LABETALOL\LABETALOL HYDROCHLORIDE
  36. POTASSIUM CHLORIDE. [Concomitant]
     Active Substance: POTASSIUM CHLORIDE
  37. SCOPOLAMINE HCL [Concomitant]
     Active Substance: SCOPOLAMINE
  38. BUPIVACAINE. [Concomitant]
     Active Substance: BUPIVACAINE
  39. CALCIUM CARBONATE. [Concomitant]
     Active Substance: CALCIUM CARBONATE
  40. CELECOXIB. [Concomitant]
     Active Substance: CELECOXIB
  41. DAPSONE. [Concomitant]
     Active Substance: DAPSONE
  42. DIPHENHYDRAMINE. [Concomitant]
     Active Substance: DIPHENHYDRAMINE
  43. DOCUSATE [Concomitant]
     Active Substance: DOCUSATE
  44. ENOXAPARIN [Concomitant]
     Active Substance: ENOXAPARIN
  45. ERYTHROMYCIN. [Concomitant]
     Active Substance: ERYTHROMYCIN
  46. MOXIFLOXACIN. [Concomitant]
     Active Substance: MOXIFLOXACIN
  47. OXYCODONE [Concomitant]
     Active Substance: OXYCODONE
  48. PERMETHRIN. [Concomitant]
     Active Substance: PERMETHRIN
  49. RANITIDINE. [Concomitant]
     Active Substance: RANITIDINE
  50. SHINGRIX [Concomitant]
     Active Substance: RECOMBINANT VARICELLA ZOSTER VIRUS (VZV) GLYCOPROTEIN E
  51. SIMETHICONE (DIMETHICONE) [Concomitant]
     Active Substance: DIMETHICONE
  52. SULFAMETHOXAZOLE [Concomitant]
     Active Substance: SULFAMETHOXAZOLE
  53. ASPIRIN [ACETYLSALICYLIC ACID] [Concomitant]
     Active Substance: ASPIRIN
  54. AZITHROMYCIN ANHYDROUS. [Concomitant]
     Active Substance: AZITHROMYCIN ANHYDROUS
  55. BISACODYL. [Concomitant]
     Active Substance: BISACODYL
  56. CEFAZOLIN [Concomitant]
     Active Substance: CEFAZOLIN
  57. CEPHALEXINE [Concomitant]
     Active Substance: CEPHALEXIN
  58. CHLORHEXIDINE [Concomitant]
     Active Substance: CHLORHEXIDINE
  59. CHLORZOXAZONE. [Concomitant]
     Active Substance: CHLORZOXAZONE
  60. HYDROMORPHONE [Concomitant]
     Active Substance: HYDROMORPHONE
  61. IBUPROFEN. [Concomitant]
     Active Substance: IBUPROFEN
  62. MORPHINE [Concomitant]
     Active Substance: MORPHINE
  63. NAPROXEN. [Concomitant]
     Active Substance: NAPROXEN
  64. ONDANSETRON [Concomitant]
     Active Substance: ONDANSETRON
  65. PENICILLIN [BENZYLPENICILLIN] [Concomitant]
     Active Substance: PENICILLIN G
  66. TERBINAFINE. [Concomitant]
     Active Substance: TERBINAFINE
  67. EMTRIVA [Concomitant]
     Active Substance: EMTRICITABINE
  68. SYMTUZA [Concomitant]
     Active Substance: COBICISTAT\DARUNAVIR\EMTRICITABINE\TENOFOVIR ALAFENAMIDE
  69. ACETAMINOPHEN. [Concomitant]
     Active Substance: ACETAMINOPHEN
  70. CLINDAMYCIN. [Concomitant]
     Active Substance: CLINDAMYCIN
  71. CYCLOBENZAPRINE. [Concomitant]
     Active Substance: CYCLOBENZAPRINE
  72. EPINEPHRINE. [Concomitant]
     Active Substance: EPINEPHRINE
  73. FLURBIPROFEN. [Concomitant]
     Active Substance: FLURBIPROFEN
  74. HYDROCODONE [Concomitant]
     Active Substance: HYDROCODONE
  75. KETOROLAC [Concomitant]
     Active Substance: KETOROLAC TROMETHAMINE
  76. NYSTATIN. [Concomitant]
     Active Substance: NYSTATIN
  77. PODOFILOX. [Concomitant]
     Active Substance: PODOFILOX

REACTIONS (7)
  - Pain [Not Recovered/Not Resolved]
  - Emotional distress [Not Recovered/Not Resolved]
  - Anhedonia [Not Recovered/Not Resolved]
  - Bone density decreased [Not Recovered/Not Resolved]
  - Osteoarthritis [Not Recovered/Not Resolved]
  - Anxiety [Not Recovered/Not Resolved]
  - Osteoporosis [Not Recovered/Not Resolved]

NARRATIVE: CASE EVENT DATE: 2016
